FAERS Safety Report 5758709-3 (Version None)
Quarter: 2008Q2

REPORT INFORMATION
  Report Type: 
  Country: None (occurrence: None)
  Receive Date: 20080603
  Receipt Date: 20080603
  Transmission Date: 20081010
  Serious: No
  Sender: FDA-Public Use
  Company Number: None

PATIENT
  Sex: Female
  Weight: 53.0709 kg

DRUGS (1)
  1. MIRENA [Suspect]
     Dates: start: 20071221, end: 20080509

REACTIONS (3)
  - IUCD COMPLICATION [None]
  - PELVIC ABSCESS [None]
  - UTERINE HAEMORRHAGE [None]
